FAERS Safety Report 26096938 (Version 1)
Quarter: 2025Q4

REPORT INFORMATION
  Report Type: Report from Study
  Country: US (occurrence: US)
  Receive Date: 20251127
  Receipt Date: 20251127
  Transmission Date: 20260118
  Serious: Yes (Other)
  Sender: AUROBINDO
  Company Number: US-MLMSERVICE-20251114-PI711624-00082-3

PATIENT
  Age: 10 Month
  Sex: Female

DRUGS (3)
  1. MELPHALAN [Suspect]
     Active Substance: MELPHALAN
     Indication: Retinoblastoma
     Dosage: 4 MILLIGRAM, CYCLICAL (VOLUME: 20 ML ; 6 CYCLES;)
  2. CARBOPLATIN [Suspect]
     Active Substance: CARBOPLATIN
     Indication: Retinoblastoma
     Dosage: 30 MILLIGRAM, CYCLICAL (VOLUME: 20 ML ; 6 CYCLES;)
  3. TOPOTECAN [Suspect]
     Active Substance: TOPOTECAN HYDROCHLORIDE
     Indication: Retinoblastoma
     Dosage: 0.3 MILLIGRAM, CYCLICAL (VOLUME: 20 ML; 6 CYCLES;)

REACTIONS (9)
  - Cerebral ischaemia [Recovered/Resolved]
  - Air embolism [Recovered/Resolved]
  - Vomiting [Recovered/Resolved]
  - Nausea [Recovered/Resolved]
  - Gastrointestinal motility disorder [Recovered/Resolved]
  - Fatigue [Recovered/Resolved]
  - Hypotension [Recovered/Resolved]
  - Visual pathway disorder [Recovered/Resolved]
  - Cerebral disorder [Recovered/Resolved]
